FAERS Safety Report 5460068-0 (Version None)
Quarter: 2007Q3

REPORT INFORMATION
  Report Type: 
  Country: None (occurrence: None)
  Receive Date: 20070919
  Receipt Date: 20070430
  Transmission Date: 20080115
  Serious: No
  Sender: FDA-Public Use
  Company Number: US-ASTRAZENECA-2007UW11144

PATIENT
  Sex: Female
  Weight: 60 kg

DRUGS (6)
  1. SEROQUEL [Suspect]
     Route: 048
     Dates: start: 20041012, end: 20041116
  2. GEODON [Concomitant]
     Dates: start: 20030101
  3. NAVANE [Concomitant]
  4. RISPERDAL [Concomitant]
     Dates: start: 20040923
  5. STELAZINE [Concomitant]
     Dates: start: 19860101
  6. ZYPREXA [Concomitant]

REACTIONS (4)
  - CONFUSIONAL STATE [None]
  - DIABETES MELLITUS [None]
  - DIZZINESS [None]
  - MUSCLE TIGHTNESS [None]
